FAERS Safety Report 9157844 (Version 1)
Quarter: 2013Q1

REPORT INFORMATION
  Report Type: Spontaneous
  Country: AU (occurrence: None)
  Receive Date: 20130212
  Receipt Date: 20130212
  Transmission Date: 20140127
  Serious: Yes (Congenital Anomaly)
  Sender: FDA-Public Use
  Company Number: B0865788A

PATIENT
  Sex: 0

DRUGS (3)
  1. LAMOTRIGINE (FORMULATION UNKNOWN) (GENERIC) (LAMOTRIGINE) [Suspect]
     Indication: EPILEPSY
     Route: 064
  2. CARBAMAZEPINE [Suspect]
     Indication: EPILEPSY
     Route: 064
  3. VALPROATE SODIUM (FORMULATION UNKNOWN) (VALPROATE SODIUM) [Suspect]
     Route: 064

REACTIONS (4)
  - Abdominal transposition [None]
  - Tracheo-oesophageal fistula [None]
  - Cardiac septal defect [None]
  - Maternal drugs affecting foetus [None]
